FAERS Safety Report 18154369 (Version 3)
Quarter: 2020Q3

REPORT INFORMATION
  Report Type: Spontaneous
  Country: PL (occurrence: PL)
  Receive Date: 20200817
  Receipt Date: 20200828
  Transmission Date: 20201103
  Serious: Yes (Life-Threatening, Hospitalization, Other)
  Sender: FDA-Public Use
  Company Number: PL-AUROBINDO-AUR-APL-2020-038297

PATIENT
  Age: 28 Year
  Sex: Male

DRUGS (7)
  1. AMOXICILLIN+CLAVULANIC ACID [Suspect]
     Active Substance: AMOXICILLIN\CLAVULANIC ACID
     Indication: PANCREATITIS ACUTE
     Dosage: UNK
     Route: 065
  2. VANCOMYCIN [Suspect]
     Active Substance: VANCOMYCIN
     Indication: CLOSTRIDIUM DIFFICILE INFECTION
     Dosage: 125 MILLIGRAM, FOUR TIMES/DAY (500 MILLIGRAM, DAILY)
     Route: 048
  3. AMOXICILLIN+CLAVULANIC ACID [Suspect]
     Active Substance: AMOXICILLIN\CLAVULANIC ACID
     Indication: ANTIBIOTIC THERAPY
  4. METRONIDAZOLE. [Suspect]
     Active Substance: METRONIDAZOLE
     Indication: CLOSTRIDIUM DIFFICILE INFECTION
  5. VANCOMYCIN [Suspect]
     Active Substance: VANCOMYCIN
     Indication: ANTIBIOTIC THERAPY
     Dosage: 500 MILLIGRAM, FOUR TIMES/DAY (2000 MILLIGRAM, DAILY)
     Route: 054
  6. AMOXICILLIN+CLAVULANIC ACID [Suspect]
     Active Substance: AMOXICILLIN\CLAVULANIC ACID
     Indication: PROPHYLAXIS
  7. METRONIDAZOLE. [Suspect]
     Active Substance: METRONIDAZOLE
     Indication: ANTIBIOTIC THERAPY
     Dosage: 500 MILLIGRAM, 3 TIMES A DAY (1500 MILLIGRAM, DAILY)
     Route: 042

REACTIONS (22)
  - Megacolon [Recovering/Resolving]
  - Respiratory failure [Recovering/Resolving]
  - Escherichia infection [Recovering/Resolving]
  - Condition aggravated [Recovering/Resolving]
  - White blood cell count increased [Recovering/Resolving]
  - Ileus paralytic [Recovering/Resolving]
  - Diarrhoea [Recovering/Resolving]
  - Product use in unapproved indication [Unknown]
  - Systemic inflammatory response syndrome [Recovered/Resolved]
  - Septic shock [Recovered/Resolved]
  - Cardiac disorder [Recovering/Resolving]
  - Contraindicated product administered [Unknown]
  - Clostridium difficile infection [Recovering/Resolving]
  - Gastroenteritis Escherichia coli [Recovering/Resolving]
  - Gastroenteritis [Recovering/Resolving]
  - Drug ineffective [Recovered/Resolved]
  - Neurological symptom [Recovering/Resolving]
  - Acute kidney injury [Recovered/Resolved]
  - Nervous system disorder [Unknown]
  - Cardio-respiratory distress [Unknown]
  - Medication error [Recovered/Resolved]
  - Pyrexia [Recovering/Resolving]
